FAERS Safety Report 4693998-8 (Version None)
Quarter: 2005Q2

REPORT INFORMATION
  Report Type: 
  Country: None (occurrence: None)
  Receive Date: 20050616
  Receipt Date: 20050614
  Transmission Date: 20051028
  Serious: No
  Sender: FDA-Public Use
  Company Number: ZONI002175

PATIENT
  Age: 20 Year
  Sex: Male

DRUGS (3)
  1. ZONEGRAN [Suspect]
     Indication: SIMPLE PARTIAL SEIZURES
     Dosage: 200 MG, 2 IN 1 D, ORAL
     Route: 048
     Dates: start: 20050101
  2. MULTIVITAMIN [Concomitant]
  3. GINGER (GINGER) [Concomitant]

REACTIONS (1)
  - ANHIDROSIS [None]
